FAERS Safety Report 10161911 (Version 1)
Quarter: 2014Q2

REPORT INFORMATION
  Report Type: Report from Study
  Country: US (occurrence: US)
  Receive Date: 20140509
  Receipt Date: 20140509
  Transmission Date: 20141212
  Serious: Yes (Hospitalization)
  Sender: FDA-Public Use
  Company Number: US-ROCHE-1396559

PATIENT
  Age: 9 Year
  Sex: Male
  Weight: 23.2 kg

DRUGS (3)
  1. NUTROPIN AQ [Suspect]
     Indication: GROWTH HORMONE DEFICIENCY
     Route: 058
  2. LEVOTHYROXINE [Concomitant]
     Indication: HYPOTHYROIDISM
     Route: 048
  3. BOTOX [Concomitant]

REACTIONS (5)
  - Pneumonia [Unknown]
  - Pyrexia [Unknown]
  - Ear infection [Unknown]
  - Blood glucose increased [Unknown]
  - Psychomotor hyperactivity [Unknown]
